FAERS Safety Report 4971855-7 (Version None)
Quarter: 2006Q2

REPORT INFORMATION
  Report Type: 
  Country: None (occurrence: None)
  Receive Date: 20060413
  Receipt Date: 20060328
  Transmission Date: 20061013
  Serious: Yes (Other)
  Sender: FDA-Public Use
  Company Number: PHBS2006BR04821

PATIENT
  Age: 85 Year
  Sex: Female

DRUGS (11)
  1. EXELON [Suspect]
     Indication: DEMENTIA
     Dosage: UNK, UNK
     Route: 048
     Dates: start: 20041101
  2. EXELON [Suspect]
     Dosage: 1.5 MG, BID
     Route: 048
  3. EXELON [Suspect]
     Dosage: 2 CAPS MORNING, 1 NIGHT
     Route: 048
  4. OMEPRAZOLE [Concomitant]
     Dosage: 1 DF, QD
     Route: 048
  5. PROLOPA [Concomitant]
     Indication: PARKINSON'S DISEASE
     Dosage: 3 DF/DAY
     Route: 048
     Dates: start: 20041101
  6. PROLOPA [Concomitant]
     Dosage: 2 DF/DAY
     Route: 048
  7. PROLOPA [Concomitant]
     Dosage: 3 DF/DAY
     Route: 048
  8. ARIMIDEX [Concomitant]
     Indication: BREAST CANCER FEMALE
     Dosage: UNK, UNK
     Route: 048
     Dates: end: 20051201
  9. ARIMIDEX [Concomitant]
     Dosage: 1 DF, QD
     Route: 048
     Dates: start: 20060301
  10. SEROQUEL [Concomitant]
     Dosage: UNK, UNK
     Route: 048
     Dates: start: 20040801
  11. CALCORT [Concomitant]
     Indication: OSTEOARTHRITIS
     Route: 048

REACTIONS (5)
  - CRYING [None]
  - MASS [None]
  - MOOD ALTERED [None]
  - MUSCLE RIGIDITY [None]
  - SOMNOLENCE [None]
